FAERS Safety Report 19210829 (Version 1)
Quarter: 2021Q2

REPORT INFORMATION
  Report Type: Spontaneous
  Country: US (occurrence: US)
  Receive Date: 20210503
  Receipt Date: 20210503
  Transmission Date: 20210717
  Serious: Yes (Disabling)
  Sender: FDA-Public Use
  Company Number: None

PATIENT
  Age: 59 Year
  Sex: Female

DRUGS (6)
  1. ACYCLOVIR. [Concomitant]
     Active Substance: ACYCLOVIR
  2. VITAMIN D3 [Concomitant]
     Active Substance: CHOLECALCIFEROL
  3. TEA [Concomitant]
     Active Substance: TEA LEAF
  4. MODAFINAL [Concomitant]
  5. OCREVUS [Suspect]
     Active Substance: OCRELIZUMAB
     Indication: MULTIPLE SCLEROSIS
     Dosage: ?          OTHER FREQUENCY:INFUSION/6 MONTHS;OTHER ROUTE:INFUSION?
     Dates: start: 20170505
  6. BIOTIN [Concomitant]
     Active Substance: BIOTIN

REACTIONS (8)
  - Tinnitus [None]
  - Sinus disorder [None]
  - Hernia [None]
  - Walking aid user [None]
  - Gastrooesophageal reflux disease [None]
  - Libido decreased [None]
  - Weight increased [None]
  - General physical health deterioration [None]

NARRATIVE: CASE EVENT DATE: 20170505
